FAERS Safety Report 9051878 (Version 1)
Quarter: 2013Q1

REPORT INFORMATION
  Report Type: Spontaneous
  Country: US (occurrence: None)
  Receive Date: 20130130
  Receipt Date: 20130130
  Transmission Date: 20140127
  Serious: Yes (Other)
  Sender: FDA-Public Use
  Company Number: None

PATIENT
  Age: 39 Year
  Sex: Female
  Weight: 61.69 kg

DRUGS (2)
  1. APRI [Suspect]
     Dates: start: 201207, end: 201210
  2. ETHINYL ESTRADIOL\ETHYNODIOL DIACETATE [Suspect]
     Dates: start: 201210, end: 201301

REACTIONS (5)
  - Metrorrhagia [None]
  - Mood altered [None]
  - Muscle spasms [None]
  - Haemorrhage [None]
  - Attention deficit/hyperactivity disorder [None]
